FAERS Safety Report 7972083-3 (Version None)
Quarter: 2011Q4

REPORT INFORMATION
  Report Type: 
  Country: None (occurrence: None)
  Receive Date: 20111212
  Receipt Date: 20111205
  Transmission Date: 20120403
  Serious: No
  Sender: FDA-Public Use
  Company Number: US-PFIZER INC-2011297061

PATIENT
  Sex: Female

DRUGS (5)
  1. DIAZEPAM [Interacting]
     Dosage: UNK
  2. PERCOCET [Interacting]
     Dosage: UNK
  3. ZYBAN [Suspect]
     Dosage: UNK
  4. GABAPENTIN [Interacting]
     Dosage: UNK
  5. HYDROMORPHONE HCL [Interacting]
     Dosage: UNK

REACTIONS (3)
  - URTICARIA [None]
  - DRUG INTERACTION [None]
  - DRUG HYPERSENSITIVITY [None]
